FAERS Safety Report 9814986 (Version 5)
Quarter: 2016Q3

REPORT INFORMATION
  Report Type: Spontaneous
  Country: CA (occurrence: CA)
  Receive Date: 20140114
  Receipt Date: 20160923
  Transmission Date: 20161109
  Serious: Yes (Hospitalization)
  Sender: FDA-Public Use
  Company Number: CA-ROCHE-1332793

PATIENT
  Age: 19 Year
  Sex: Female

DRUGS (1)
  1. XOLAIR [Suspect]
     Active Substance: OMALIZUMAB
     Indication: ASTHMA
     Route: 058
     Dates: start: 20090506

REACTIONS (9)
  - Clostridium difficile infection [Recovered/Resolved]
  - Lower respiratory tract infection [Unknown]
  - Lung infection [Unknown]
  - Concomitant disease aggravated [Unknown]
  - General physical condition abnormal [Unknown]
  - Dyspnoea [Unknown]
  - Cystic fibrosis [Unknown]
  - Pneumonia [Unknown]
  - Malaise [Unknown]

NARRATIVE: CASE EVENT DATE: 20140106
